FAERS Safety Report 8053221-3 (Version None)
Quarter: 2012Q1

REPORT INFORMATION
  Report Type: 
  Country: None (occurrence: None)
  Receive Date: 20120118
  Receipt Date: 20120104
  Transmission Date: 20120608
  Serious: Yes (Hospitalization, Other)
  Sender: FDA-Public Use
  Company Number: GB-ARROW GEN-2011-21659

PATIENT
  Age: 87 Year
  Sex: Female

DRUGS (9)
  1. LANSOPRAZOLE [Concomitant]
     Indication: PRODUCT USED FOR UNKNOWN INDICATION
     Dosage: 30 MG, DAILY
     Route: 048
  2. LEVOTHYROXINE SODIUM [Concomitant]
     Indication: PRODUCT USED FOR UNKNOWN INDICATION
     Dosage: 25 UG, UNK
     Route: 048
  3. CANDESARTAN CILEXETIL [Concomitant]
     Indication: PRODUCT USED FOR UNKNOWN INDICATION
     Dosage: 8 MG, DAILY
     Dates: end: 20111111
  4. QUININE BISULFATE [Concomitant]
     Indication: PRODUCT USED FOR UNKNOWN INDICATION
     Dosage: 300 MG, DAILY
  5. CITALOPRAM HYDROBROMIDE [Suspect]
     Indication: DEPRESSION
     Dosage: 10 MG, DAILY
     Route: 048
     Dates: start: 20111014, end: 20111111
  6. ASPIRIN [Concomitant]
     Indication: PRODUCT USED FOR UNKNOWN INDICATION
     Dosage: 75 MG, DAILY
  7. FUROSEMIDE [Concomitant]
     Indication: PRODUCT USED FOR UNKNOWN INDICATION
     Dosage: 40 MG, DAILY
     Dates: end: 20111111
  8. ACETAMINOPHEN [Concomitant]
     Indication: PAIN
     Dosage: 500 MG, QID
     Route: 048
  9. PROCHLORPERAZINE [Concomitant]
     Indication: PRODUCT USED FOR UNKNOWN INDICATION
     Dosage: 3 MG, TID
     Route: 002
     Dates: start: 20111024, end: 20111111

REACTIONS (25)
  - BLOOD SODIUM DECREASED [None]
  - TREMOR [None]
  - ABDOMINAL PAIN [None]
  - DYSKINESIA [None]
  - ARTHRALGIA [None]
  - MALAISE [None]
  - RHINORRHOEA [None]
  - THIRST [None]
  - DISTURBANCE IN ATTENTION [None]
  - CONSTIPATION [None]
  - FLATULENCE [None]
  - MYALGIA [None]
  - SEROTONIN SYNDROME [None]
  - MICTURITION URGENCY [None]
  - ANXIETY [None]
  - PANIC ATTACK [None]
  - ABDOMINAL PAIN UPPER [None]
  - AGITATION [None]
  - AMNESIA [None]
  - INSOMNIA [None]
  - BLEEDING TIME PROLONGED [None]
  - LISTLESS [None]
  - DYSURIA [None]
  - MOVEMENT DISORDER [None]
  - NERVOUSNESS [None]
